FAERS Safety Report 5484613-4 (Version None)
Quarter: 2007Q4

REPORT INFORMATION
  Report Type: 
  Country: None (occurrence: None)
  Receive Date: 20071012
  Receipt Date: 20071002
  Transmission Date: 20080405
  Serious: Yes (Hospitalization)
  Sender: FDA-Public Use
  Company Number: US-PFIZER INC-2007051049

PATIENT
  Sex: Male
  Weight: 16.8 kg

DRUGS (8)
  1. DIFLUCAN [Interacting]
     Indication: SKIN INFECTION
  2. DEPAKOTE [Suspect]
  3. RISPERIDONE [Concomitant]
  4. CLONAZEPAM [Concomitant]
  5. LEVOCARNITINE [Concomitant]
  6. ALL OTHER THERAPEUTIC PRODUCTS [Concomitant]
  7. METOCLOPRAMIDE [Concomitant]
  8. PULMICORT [Concomitant]

REACTIONS (2)
  - BLOOD CALCIUM INCREASED [None]
  - DRUG INTERACTION [None]
